FAERS Safety Report 9868794 (Version 1)
Quarter: 2014Q1

REPORT INFORMATION
  Report Type: Spontaneous
  Country: CA (occurrence: CA)
  Receive Date: 20140204
  Receipt Date: 20140204
  Transmission Date: 20141002
  Serious: Yes (Other)
  Sender: FDA-Public Use
  Company Number: CA-VERTEX PHARMACEUTICALS INC-2014-000493

PATIENT
  Age: 50 Year
  Sex: Female

DRUGS (4)
  1. INCIVEK [Suspect]
     Indication: HEPATITIS C
     Dosage: UNK
  2. PEGASYS [Suspect]
     Indication: HEPATITIS C
     Dosage: 180 ?G, QW
     Route: 058
  3. RIBAVIRIN [Suspect]
     Indication: HEPATITIS C
     Dosage: 800 MG, UNK
  4. RIBAVIRIN [Suspect]
     Dosage: 1000 MG, UNK

REACTIONS (6)
  - Alopecia [Unknown]
  - Crohn^s disease [Unknown]
  - Ear infection [Unknown]
  - Hepatic pain [Unknown]
  - Lung infection [Unknown]
  - Skin infection [Unknown]
